FAERS Safety Report 7829883-X (Version None)
Quarter: 2011Q4

REPORT INFORMATION
  Report Type: 
  Country: None (occurrence: None)
  Receive Date: 20111018
  Receipt Date: 20111003
  Transmission Date: 20120403
  Serious: Yes (Death)
  Sender: FDA-Public Use
  Company Number: 2011100011

PATIENT
  Age: 51 Year
  Sex: Female

DRUGS (2)
  1. ACETAMINOPHEN WITH HYDROCODONE (HYDROCODONE, ACETAMINOPHEN) [Suspect]
  2. CARISOPRODOL [Suspect]

REACTIONS (1)
  - COMPLETED SUICIDE [None]
